FAERS Safety Report 6100678-0 (Version None)
Quarter: 2009Q1

REPORT INFORMATION
  Report Type: 
  Country: None (occurrence: None)
  Receive Date: 20090303
  Receipt Date: 20090223
  Transmission Date: 20090719
  Serious: Yes (Disabling)
  Sender: FDA-Public Use
  Company Number: PHEH2009US01632

PATIENT
  Sex: Female
  Weight: 85.261 kg

DRUGS (7)
  1. RECLAST [Suspect]
     Indication: SENILE OSTEOPOROSIS
     Dosage: 5 MG
     Route: 042
     Dates: start: 20080325
  2. PROZAC [Concomitant]
     Indication: DEPRESSION
     Dosage: 20 MG, QD
     Route: 048
     Dates: start: 20040101
  3. SYNTHROID [Concomitant]
     Indication: HYPOTHYROIDISM
     Dosage: 75 MCG ALT. WITH 50MCG, DAILY
     Route: 048
     Dates: start: 20060101
  4. TRAZODONE HCL [Concomitant]
     Indication: DEPRESSION
     Dosage: 50 MG, QD
     Route: 048
     Dates: start: 20070101
  5. CELEBREX [Concomitant]
     Indication: OSTEOARTHRITIS
     Dosage: 20 MG, QD
     Route: 048
     Dates: start: 20040101, end: 20081118
  6. CALCIUM [Concomitant]
  7. MIACALCIN [Concomitant]

REACTIONS (10)
  - BACK DISORDER [None]
  - BONE PAIN [None]
  - EYE OEDEMA [None]
  - HEADACHE [None]
  - MALAISE [None]
  - MUSCULAR WEAKNESS [None]
  - MYALGIA [None]
  - OEDEMA PERIPHERAL [None]
  - PAIN IN JAW [None]
  - SWELLING FACE [None]
